FAERS Safety Report 9706626 (Version 2)
Quarter: 2014Q2

REPORT INFORMATION
  Report Type: Spontaneous
  Country: US (occurrence: US)
  Receive Date: 20131125
  Receipt Date: 20140424
  Transmission Date: 20141212
  Serious: Yes (Other)
  Sender: FDA-Public Use
  Company Number: US-JNJFOC-20131109823

PATIENT
  Age: 86 Year
  Sex: Male
  Weight: 100.7 kg

DRUGS (7)
  1. XARELTO [Suspect]
     Indication: CEREBROVASCULAR ACCIDENT PROPHYLAXIS
     Route: 048
     Dates: start: 20130703
  2. XARELTO [Suspect]
     Indication: ATRIAL FIBRILLATION
     Route: 048
     Dates: start: 20130703
  3. TAMSULOSIN [Concomitant]
     Indication: PROSTATOMEGALY
     Route: 065
  4. TAMSULOSIN [Concomitant]
     Indication: URINARY TRACT DISORDER
     Route: 065
  5. ATENOLOL [Concomitant]
     Indication: HYPERTENSION
     Route: 048
  6. ATORVASTATIN [Concomitant]
     Indication: BLOOD CHOLESTEROL
     Route: 048
  7. ADVAIR [Concomitant]
     Indication: DYSPNOEA
     Dosage: 250/50
     Route: 065

REACTIONS (5)
  - Wound haemorrhage [Not Recovered/Not Resolved]
  - Rash papular [Not Recovered/Not Resolved]
  - Contusion [Not Recovered/Not Resolved]
  - Pruritus [Not Recovered/Not Resolved]
  - Drug prescribing error [Not Recovered/Not Resolved]
